FAERS Safety Report 6066719-4 (Version None)
Quarter: 2009Q1

REPORT INFORMATION
  Report Type: 
  Country: None (occurrence: None)
  Receive Date: 20090205
  Receipt Date: 20080529
  Transmission Date: 20090719
  Serious: No
  Sender: FDA-Public Use
  Company Number: US-ABBOTT-08P-163-0454377-00

PATIENT
  Sex: Male
  Weight: 77.18 kg

DRUGS (11)
  1. VICODIN [Suspect]
     Indication: BACK PAIN
     Dosage: 7.5/500MG, 4-5 TABLETS PER DAY
     Route: 048
  2. OPANA ER [Suspect]
     Indication: BACK PAIN
     Route: 048
     Dates: start: 20071201, end: 20080502
  3. GABAPENTIN [Suspect]
     Indication: CONVULSION
     Route: 048
  4. DIGOXIN [Concomitant]
     Indication: DRUG USE FOR UNKNOWN INDICATION
  5. DULOXETINE HYDROCHLORIDE [Concomitant]
     Indication: DRUG USE FOR UNKNOWN INDICATION
  6. DIOVOL [Concomitant]
     Indication: DRUG USE FOR UNKNOWN INDICATION
  7. PREDNISONE [Concomitant]
     Indication: DRUG USE FOR UNKNOWN INDICATION
  8. BISOPROLOL FUMARATE [Concomitant]
     Indication: DRUG USE FOR UNKNOWN INDICATION
  9. CLOPIDOGREL [Concomitant]
     Indication: DRUG USE FOR UNKNOWN INDICATION
  10. ACETYLSALICYLIC ACID SRT [Concomitant]
     Indication: DRUG USE FOR UNKNOWN INDICATION
  11. SPIRONOLACTONE [Concomitant]
     Indication: FLUID RETENTION

REACTIONS (1)
  - DRUG EFFECT DECREASED [None]
